FAERS Safety Report 24122370 (Version 3)
Quarter: 2025Q3

REPORT INFORMATION
  Report Type: Report from Study
  Country: EU (occurrence: EU)
  Receive Date: 20240723
  Receipt Date: 20250829
  Transmission Date: 20251021
  Serious: Yes (Hospitalization, Other)
  Sender: AUROBINDO
  Company Number: EU-PHARMALEX-2022000320

PATIENT
  Age: 50 Year
  Sex: Female

DRUGS (11)
  1. PREGABALIN [Suspect]
     Active Substance: PREGABALIN
     Indication: Neuralgia
     Route: 065
  2. PREGABALIN [Suspect]
     Active Substance: PREGABALIN
     Indication: Withdrawal syndrome
  3. PREGABALIN [Suspect]
     Active Substance: PREGABALIN
     Indication: Epilepsy
  4. HEROIN [Suspect]
     Active Substance: DIAMORPHINE
     Indication: Neuralgia
     Route: 065
  5. HEROIN [Suspect]
     Active Substance: DIAMORPHINE
     Indication: Withdrawal syndrome
  6. HEROIN [Suspect]
     Active Substance: DIAMORPHINE
     Indication: Epilepsy
  7. COCAINE [Suspect]
     Active Substance: COCAINE
     Indication: Neuralgia
     Route: 065
  8. COCAINE [Suspect]
     Active Substance: COCAINE
     Indication: Withdrawal syndrome
  9. COCAINE [Suspect]
     Active Substance: COCAINE
     Indication: Epilepsy
  10. TILIDINE [Suspect]
     Active Substance: TILIDINE
     Indication: Product used for unknown indication
     Route: 065
  11. METHADONE [Suspect]
     Active Substance: METHADONE HYDROCHLORIDE
     Indication: Product used for unknown indication
     Route: 065

REACTIONS (2)
  - Drug dependence [Unknown]
  - Overdose [Unknown]
